FAERS Safety Report 20669063 (Version 1)
Quarter: 2022Q2

REPORT INFORMATION
  Report Type: Spontaneous
  Country: US (occurrence: None)
  Receive Date: 20220402
  Receipt Date: 20220402
  Transmission Date: 20220721
  Serious: No
  Sender: FDA-Public Use
  Company Number: None

PATIENT
  Age: 35 Year
  Sex: Female
  Weight: 96.75 kg

DRUGS (2)
  1. ELURYNG [Suspect]
     Active Substance: ETHINYL ESTRADIOL\ETONOGESTREL
     Indication: Dysmenorrhoea
     Dosage: OTHER QUANTITY : 1 RING;?OTHER FREQUENCY : EVERY 3 WEEKS;?
     Route: 067
     Dates: start: 20210405
  2. UNSPECIFIED INGREDIENT [Concomitant]
     Active Substance: UNSPECIFIED INGREDIENT

REACTIONS (3)
  - Drug ineffective [None]
  - Heavy menstrual bleeding [None]
  - Endometrial thickening [None]

NARRATIVE: CASE EVENT DATE: 20220314
